FAERS Safety Report 6037812-7 (Version None)
Quarter: 2009Q1

REPORT INFORMATION
  Report Type: 
  Country: None (occurrence: None)
  Receive Date: 20090113
  Receipt Date: 20081217
  Transmission Date: 20090719
  Serious: Yes (Other)
  Sender: FDA-Public Use
  Company Number: SYKL2008-0128

PATIENT
  Age: 70 Year
  Sex: Female

DRUGS (8)
  1. EPIRUBICIN [Suspect]
  2. CYCLOPHOSPHAMIDE [Suspect]
  3. METHOTREXATE [Suspect]
  4. PAMIDRONATE DISODIUM [Suspect]
     Dosage: 90 MG, INTRAVENOUS
     Route: 042
  5. FLUOROURACIL [Suspect]
  6. DOCETAXEL [Suspect]
  7. GEMCITABINE [Suspect]
  8. CAPECITABINE [Suspect]

REACTIONS (3)
  - INFECTION [None]
  - MUCOSAL INFLAMMATION [None]
  - OSTEONECROSIS [None]
